FAERS Safety Report 16488889 (Version 1)
Quarter: 2019Q2

REPORT INFORMATION
  Report Type: Report from Study
  Country: None (occurrence: US)
  Receive Date: 20190627
  Receipt Date: 20190627
  Transmission Date: 20190711
  Serious: Yes (Other)
  Sender: FDA-Public Use
  Company Number: US-ABBVIE-18K-163-2395837-00

PATIENT
  Age: 54 Year
  Sex: Female

DRUGS (1)
  1. HUMIRA [Suspect]
     Active Substance: ADALIMUMAB
     Indication: PSORIATIC ARTHROPATHY
     Route: 058
     Dates: start: 20180523, end: 201903

REACTIONS (28)
  - Cough [Unknown]
  - Dyspnoea [Unknown]
  - Peripheral swelling [Recovering/Resolving]
  - Headache [Unknown]
  - Pyrexia [Unknown]
  - Cough [Recovered/Resolved]
  - Rash papular [Unknown]
  - Bronchitis [Recovered/Resolved]
  - Back pain [Recovering/Resolving]
  - Injection site bruising [Not Recovered/Not Resolved]
  - Muscle spasms [Unknown]
  - Pain [Recovered/Resolved]
  - Wheezing [Unknown]
  - Urinary tract infection [Recovered/Resolved]
  - Arthralgia [Not Recovered/Not Resolved]
  - Spinal stenosis [Recovering/Resolving]
  - Fatigue [Unknown]
  - Sleep apnoea syndrome [Unknown]
  - Lung disorder [Unknown]
  - Gait disturbance [Recovering/Resolving]
  - Anxiety [Unknown]
  - Respiratory tract congestion [Unknown]
  - Loss of personal independence in daily activities [Recovering/Resolving]
  - Depression [Unknown]
  - Gastroenteritis viral [Recovered/Resolved]
  - Sinusitis [Recovered/Resolved]
  - Pain [Unknown]
  - Fatigue [Unknown]

NARRATIVE: CASE EVENT DATE: 2018
